FAERS Safety Report 4969785-X (Version None)
Quarter: 2006Q2

REPORT INFORMATION
  Report Type: 
  Country: None (occurrence: None)
  Receive Date: 20060411
  Receipt Date: 20051202
  Transmission Date: 20061013
  Serious: Yes (Hospitalization, Disabling)
  Sender: FDA-Public Use
  Company Number: US-MERCK-0512USA00444

PATIENT
  Age: 56 Year
  Sex: Male
  Weight: 95 kg

DRUGS (1)
  1. VIOXX [Suspect]
     Indication: ARTHRALGIA
     Route: 048
     Dates: start: 20001010, end: 20030110

REACTIONS (3)
  - CEREBROVASCULAR ACCIDENT [None]
  - DYSPNOEA [None]
  - MYOCARDIAL INFARCTION [None]
